FAERS Safety Report 6402095-2 (Version None)
Quarter: 2009Q4

REPORT INFORMATION
  Report Type: 
  Country: None (occurrence: None)
  Receive Date: 20091015
  Receipt Date: 20090821
  Transmission Date: 20100525
  Serious: Yes (Other)
  Sender: FDA-Public Use
  Company Number: CHNY2009BR03297

PATIENT
  Sex: Female

DRUGS (2)
  1. NUPERCAINAL (NCH) [Suspect]
     Indication: HAEMORRHOIDS
     Dosage: UNK
     Dates: start: 20080101
  2. NUPERCAINAL (NCH) [Suspect]
     Indication: PAIN

REACTIONS (1)
  - SURGERY [None]
